FAERS Safety Report 7968016-6 (Version None)
Quarter: 2011Q4

REPORT INFORMATION
  Report Type: 
  Country: None (occurrence: None)
  Receive Date: 20111209
  Receipt Date: 20111205
  Transmission Date: 20120403
  Serious: Yes (Other)
  Sender: FDA-Public Use
  Company Number: IT-GILEAD-2011-0047837

PATIENT
  Age: 71 Year
  Sex: Male

DRUGS (11)
  1. ALLOPURINOL [Suspect]
  2. RANOLAZINE [Suspect]
     Dosage: 750 MG, QD
     Route: 048
  3. ASPIRIN [Concomitant]
  4. GLYBURIDE [Concomitant]
  5. BETAMETHASONE [Concomitant]
  6. ATORVASTATIN [Concomitant]
  7. RANOLAZINE [Suspect]
     Indication: ANGINA PECTORIS
     Dosage: 375 MG, QD
  8. RANOLAZINE [Suspect]
     Dosage: 500 MG, QD
  9. DOXAZOSIN MESYLATE [Suspect]
  10. FUROSEMIDE [Concomitant]
  11. BISOPROLOL FUMARATE [Concomitant]

REACTIONS (5)
  - EPISTAXIS [None]
  - MYOCARDIAL INFARCTION [None]
  - DECREASED APPETITE [None]
  - ABDOMINAL PAIN [None]
  - ASTHENIA [None]
